FAERS Safety Report 18462955 (Version 1)
Quarter: 2020Q4

REPORT INFORMATION
  Report Type: Spontaneous
  Country: US (occurrence: US)
  Receive Date: 20201104
  Receipt Date: 20201104
  Transmission Date: 20210114
  Serious: No
  Sender: FDA-Public Use
  Company Number: US-PFIZER INC-2020424808

PATIENT
  Age: 73 Year
  Sex: Female

DRUGS (2)
  1. PROPANOLOL HCL [Suspect]
     Active Substance: PROPRANOLOL HYDROCHLORIDE
     Indication: BLOOD PRESSURE FLUCTUATION
     Dosage: 120 MG, 2X/DAY (120MG TWICE A DAY BY MOUTH)
     Route: 048
  2. CLONIDINE. [Suspect]
     Active Substance: CLONIDINE
     Indication: BLOOD PRESSURE FLUCTUATION
     Dosage: 0.25 MG, 2X/DAY (0.1MG IN THE MORNING AND AT 0.15 MG AT NIGHT/ HOLD IF THE PRESSURE IS UNDER 130)

REACTIONS (1)
  - Drug ineffective [Unknown]
